FAERS Safety Report 5874561-X (Version None)
Quarter: 2008Q3

REPORT INFORMATION
  Report Type: 
  Country: None (occurrence: None)
  Receive Date: 20080909
  Receipt Date: 20080903
  Transmission Date: 20090109
  Serious: Yes (Life-Threatening)
  Sender: FDA-Public Use
  Company Number: PHBS2008US05620

PATIENT
  Age: 43 Year
  Sex: Female

DRUGS (8)
  1. OXYTOCIN [Suspect]
     Indication: INDUCED LABOUR
     Route: 042
  2. BUPIVACAINE [Suspect]
  3. FENTANYL [Suspect]
     Dosage: 2 UG/ML, UNK
  4. FLUID/ELECTROLYTE REPLACEMENT THERAPY [Concomitant]
  5. EPHEDRINE SUL CAP [Concomitant]
  6. METHYLERGOMETRINE [Concomitant]
  7. MISOPROSTOL [Concomitant]
  8. HEPARIN [Suspect]

REACTIONS (35)
  - ABDOMINAL COMPARTMENT SYNDROME [None]
  - ABDOMINAL DISTENSION [None]
  - ACTIVATED PARTIAL THROMBOPLASTIN TIME PROLONGED [None]
  - BLOOD FIBRINOGEN DECREASED [None]
  - BLOOD PH INCREASED [None]
  - BRADYCARDIA FOETAL [None]
  - BREAKTHROUGH PAIN [None]
  - CATHETER PLACEMENT [None]
  - DEPRESSED LEVEL OF CONSCIOUSNESS [None]
  - DILATATION VENTRICULAR [None]
  - DISORIENTATION [None]
  - DISSEMINATED INTRAVASCULAR COAGULATION [None]
  - DIZZINESS [None]
  - DRUG EXPOSURE DURING PREGNANCY [None]
  - FORCEPS DELIVERY [None]
  - HYPOTENSION [None]
  - HYSTERECTOMY [None]
  - INFANT [None]
  - LAPAROTOMY [None]
  - LUNG INFILTRATION [None]
  - NAUSEA [None]
  - OXYGEN SATURATION DECREASED [None]
  - PCO2 INCREASED [None]
  - PLATELET COUNT DECREASED [None]
  - PO2 DECREASED [None]
  - POSTPARTUM HAEMORRHAGE [None]
  - PROTHROMBIN TIME PROLONGED [None]
  - PULMONARY OEDEMA [None]
  - SALPINGO-OOPHORECTOMY [None]
  - SURGERY [None]
  - TACHYCARDIA [None]
  - URINE OUTPUT DECREASED [None]
  - UTERINE ATONY [None]
  - UTERINE HAEMORRHAGE [None]
  - VENTRICULAR ASSIST DEVICE INSERTION [None]
